FAERS Safety Report 14377845 (Version 1)
Quarter: 2018Q1

REPORT INFORMATION
  Report Type: Spontaneous
  Country: FR (occurrence: FR)
  Receive Date: 20180111
  Receipt Date: 20180111
  Transmission Date: 20180509
  Serious: Yes (Hospitalization)
  Sender: FDA-Public Use
  Company Number: FR-SA-2017SA268848

PATIENT
  Age: 79 Year
  Sex: Male

DRUGS (16)
  1. UROREC [Concomitant]
     Active Substance: SILODOSIN
  2. ALLOPURINOL. [Concomitant]
     Active Substance: ALLOPURINOL
  3. ESOMEPRAZOLE [Concomitant]
     Active Substance: ESOMEPRAZOLE
  4. RAMIPRIL. [Suspect]
     Active Substance: RAMIPRIL
     Indication: HYPERTENSION
     Route: 048
     Dates: end: 20171122
  5. DICLOFENAC [Concomitant]
     Active Substance: DICLOFENAC
  6. LASILIX [Concomitant]
     Active Substance: FUROSEMIDE
  7. VANCOMYCINE MYLAN [Suspect]
     Active Substance: VANCOMYCIN
     Indication: ENDOCARDITIS
     Dosage: SOLUTION POUR PERFUSION, EVERY 24 HRS
     Route: 041
     Dates: start: 20171108, end: 20171122
  8. CUBICIN [Suspect]
     Active Substance: DAPTOMYCIN
     Indication: ENDOCARDITIS
     Route: 042
     Dates: start: 20171122
  9. CORDARONE [Concomitant]
     Active Substance: AMIODARONE HYDROCHLORIDE
  10. BISOPROLOL FUMARATE. [Concomitant]
     Active Substance: BISOPROLOL FUMARATE
  11. GLICLAZIDE [Concomitant]
     Active Substance: GLICLAZIDE
  12. PREVISCAN (FLUINDIONE) [Concomitant]
     Active Substance: FLUINDIONE
  13. RIFADINE [Suspect]
     Active Substance: RIFAMPIN
     Indication: ENDOCARDITIS
     Route: 048
     Dates: start: 20171109, end: 20171130
  14. GENTAMICIN. [Suspect]
     Active Substance: GENTAMICIN
     Indication: ENDOCARDITIS
     Route: 041
     Dates: start: 20171108, end: 20171122
  15. KARDEGIC [Concomitant]
     Active Substance: ASPIRIN DL-LYSINE
  16. RIFADINE [Suspect]
     Active Substance: RIFAMPIN
     Indication: ENDOCARDITIS
     Route: 048
     Dates: start: 20171201

REACTIONS (4)
  - Jaundice [Not Recovered/Not Resolved]
  - Acute kidney injury [Recovering/Resolving]
  - Hypoacusis [Recovering/Resolving]
  - Hyperbilirubinaemia [Not Recovered/Not Resolved]

NARRATIVE: CASE EVENT DATE: 20171115
